FAERS Safety Report 18072728 (Version 1)
Quarter: 2020Q3

REPORT INFORMATION
  Report Type: Spontaneous
  Country: US (occurrence: US)
  Receive Date: 20200727
  Receipt Date: 20200727
  Transmission Date: 20201103
  Serious: No
  Sender: FDA-Public Use
  Company Number: None

PATIENT
  Age: 33 Year
  Sex: Female
  Weight: 71.1 kg

DRUGS (1)
  1. BLUMEN CLEAR ADVANCED HAND SANITIZER [Suspect]
     Active Substance: ALCOHOL
     Indication: COVID-19
     Dates: start: 20200529, end: 20200723

REACTIONS (7)
  - Dermatitis atopic [None]
  - Recalled product administered [None]
  - Application site eczema [None]
  - Product contamination chemical [None]
  - Skin fissures [None]
  - Application site dryness [None]
  - Therapy interrupted [None]

NARRATIVE: CASE EVENT DATE: 20200601
